FAERS Safety Report 7900390-9 (Version None)
Quarter: 2011Q4

REPORT INFORMATION
  Report Type: 
  Country: None (occurrence: None)
  Receive Date: 20111108
  Receipt Date: 20111025
  Transmission Date: 20120403
  Serious: Yes (Other)
  Sender: FDA-Public Use
  Company Number: AR-AMGEN-ARGSP2011054552

PATIENT
  Age: 60 Year
  Sex: Male
  Weight: 73 kg

DRUGS (3)
  1. METHOTREXATE [Concomitant]
     Dosage: UNK
  2. ENBREL [Suspect]
     Indication: RHEUMATOID ARTHRITIS
     Dosage: 25 MG, 2X/WEEK
     Route: 058
     Dates: start: 20060707, end: 20110901
  3. DICLOFENAC SODIUM [Concomitant]
     Dosage: UNK

REACTIONS (1)
  - RHEUMATOID ARTHRITIS [None]
